FAERS Safety Report 7208722-4 (Version None)
Quarter: 2011Q1

REPORT INFORMATION
  Report Type: 
  Country: None (occurrence: None)
  Receive Date: 20110104
  Receipt Date: 20101221
  Transmission Date: 20110831
  Serious: Yes (Death)
  Sender: FDA-Public Use
  Company Number: US-CELGENEUS-163-21880-10120685

PATIENT
  Sex: Female

DRUGS (14)
  1. VOLTAREN [Concomitant]
     Route: 065
  2. VITAMIN D [Concomitant]
     Dosage: 50000 UNIT
     Route: 048
  3. LORAZEPAM [Concomitant]
     Route: 048
  4. LACTULOSE [Concomitant]
     Dosage: 10G/15
     Route: 048
  5. STOOL SOFTENER [Concomitant]
     Dosage: 100-30
     Route: 048
  6. MULTI-VITAMINS [Concomitant]
     Route: 048
  7. REVLIMID [Suspect]
     Route: 048
     Dates: start: 20100601, end: 20101101
  8. REQUIP [Concomitant]
     Route: 048
  9. LASIX [Concomitant]
     Route: 048
  10. SYMBICORT [Concomitant]
     Dosage: 160-4.5
     Route: 055
  11. SPIRIVA [Concomitant]
     Route: 048
  12. EXJADE [Concomitant]
     Route: 048
  13. SYNTHROID [Concomitant]
     Route: 048
  14. POTASSIUM [Concomitant]
     Route: 048

REACTIONS (1)
  - MYELODYSPLASTIC SYNDROME [None]
